FAERS Safety Report 10014820 (Version 3)
Quarter: 2014Q4

REPORT INFORMATION
  Report Type: Spontaneous
  Country: JP (occurrence: JP)
  Receive Date: 20140317
  Receipt Date: 20141218
  Transmission Date: 20150528
  Serious: Yes (Death, Hospitalization)
  Sender: FDA-Public Use
  Company Number: JP-ELI_LILLY_AND_COMPANY-JP201403001471

PATIENT
  Age: 49 Year
  Sex: Male
  Weight: 82 kg

DRUGS (6)
  1. ALIMTA [Suspect]
     Active Substance: PEMETREXED DISODIUM
     Indication: EPITHELIOID MESOTHELIOMA
     Dosage: UNK
     Route: 042
     Dates: start: 20130219
  2. PANVITAN [Concomitant]
     Indication: PROPHYLAXIS
     Route: 065
  3. ALIMTA [Suspect]
     Active Substance: PEMETREXED DISODIUM
     Dosage: UNK
     Route: 042
     Dates: start: 20130509, end: 20130627
  4. CISPLATIN. [Concomitant]
     Active Substance: CISPLATIN
     Indication: EPITHELIOID MESOTHELIOMA
     Dosage: UNK
     Route: 065
     Dates: start: 20130219
  5. FRESMIN S [Concomitant]
     Active Substance: HYDROXOCOBALAMIN
     Indication: PROPHYLAXIS
     Route: 065
  6. CARBOPLATIN. [Concomitant]
     Active Substance: CARBOPLATIN
     Indication: EPITHELIOID MESOTHELIOMA
     Dosage: UNK
     Dates: start: 20130509, end: 20130627

REACTIONS (2)
  - Nephrotic syndrome [Recovered/Resolved]
  - Malignant neoplasm progression [Fatal]

NARRATIVE: CASE EVENT DATE: 20130924
